FAERS Safety Report 6674422-2 (Version None)
Quarter: 2010Q2

REPORT INFORMATION
  Report Type: 
  Country: None (occurrence: None)
  Receive Date: 20100409
  Receipt Date: 20100329
  Transmission Date: 20101027
  Serious: Yes (Other)
  Sender: FDA-Public Use
  Company Number: PHHY2010RU20572

PATIENT
  Sex: Female

DRUGS (4)
  1. ACLASTA [Suspect]
     Indication: OSTEOPOROSIS
     Dosage: 5MG/100ML
     Route: 042
     Dates: start: 20100324
  2. BETALOC [Concomitant]
     Indication: ATRIAL FIBRILLATION
  3. LEVOTHYROXINE SODIUM [Concomitant]
     Indication: AUTOIMMUNE THYROIDITIS
  4. CALCIUM [Concomitant]
     Dosage: UNK

REACTIONS (6)
  - ASTHENIA [None]
  - BACK PAIN [None]
  - CHILLS [None]
  - HYPOTENSION [None]
  - OLIGURIA [None]
  - PYREXIA [None]
